FAERS Safety Report 7893154-6 (Version None)
Quarter: 2011Q4

REPORT INFORMATION
  Report Type: 
  Country: None (occurrence: None)
  Receive Date: 20111104
  Receipt Date: 20111027
  Transmission Date: 20120403
  Serious: Yes (Hospitalization)
  Sender: FDA-Public Use
  Company Number: JP-EISAI INC-E7389-01426-SPO-JP

PATIENT
  Sex: Female
  Weight: 39 kg

DRUGS (3)
  1. HALAVEN [Suspect]
     Indication: RECURRENT CANCER
     Route: 041
     Dates: start: 20110819, end: 20110819
  2. GEMZAR [Concomitant]
     Dates: start: 20110610, end: 20110722
  3. DEXTROMETHORPHAN HYDROBROMIDE [Suspect]
     Indication: COUGH
     Route: 048
     Dates: start: 20110819, end: 20110821

REACTIONS (1)
  - INTERSTITIAL LUNG DISEASE [None]
